FAERS Safety Report 14983328 (Version 5)
Quarter: 2018Q2

REPORT INFORMATION
  Report Type: Spontaneous
  Country: GB (occurrence: GB)
  Receive Date: 20180607
  Receipt Date: 20180627
  Transmission Date: 20180711
  Serious: Yes (Life-Threatening, Hospitalization, Other)
  Sender: FDA-Public Use
  Company Number: GB-TORRENT-00016593

PATIENT
  Age: 29 Year
  Sex: Female

DRUGS (11)
  1. SEVOFLURANE. [Suspect]
     Active Substance: SEVOFLURANE
     Indication: ASTHMA
     Dosage: UNKNOWN
     Route: 055
  2. EPINEPHRINE. [Suspect]
     Active Substance: EPINEPHRINE
     Indication: ASTHMA
     Dosage: DILUTED IN SMALL INCREMENTS
     Route: 065
  3. ALBUTEROL. [Suspect]
     Active Substance: ALBUTEROL
     Indication: ASTHMA
     Dosage: UNKNOWN
     Route: 042
  4. HYDROCORTISONE. [Suspect]
     Active Substance: HYDROCORTISONE
     Indication: ASTHMA
     Dosage: UNKNOWN
     Route: 042
  5. MAGNESIUM SULFATE. [Suspect]
     Active Substance: MAGNESIUM SULFATE
     Indication: ASTHMA
     Dosage: UNKNOWN
  6. THEOPHYLLINE [Suspect]
     Active Substance: THEOPHYLLINE ANHYDROUS
     Indication: ASTHMA
     Dosage: UNKNOWN
     Route: 065
  7. MONTELUKAST [Concomitant]
     Active Substance: MONTELUKAST SODIUM
     Indication: ASTHMA
     Dosage: UNKNOWN
     Route: 065
  8. ATROVENT [Suspect]
     Active Substance: IPRATROPIUM BROMIDE
     Indication: ASTHMA
     Dosage: UNKNOWN
     Route: 065
  9. KETAMINE [Suspect]
     Active Substance: KETAMINE
     Indication: ASTHMA
     Route: 042
  10. MONTELUKAST SODIUM. [Suspect]
     Active Substance: MONTELUKAST SODIUM
     Indication: ASTHMA
     Dosage: UNKNOWN
     Route: 048
  11. PREDNISOLONE. [Suspect]
     Active Substance: PREDNISOLONE
     Indication: ASTHMA
     Route: 048

REACTIONS (21)
  - Asthma [Recovering/Resolving]
  - Airway peak pressure increased [Recovering/Resolving]
  - Off label use [Unknown]
  - Oxygen saturation decreased [Recovering/Resolving]
  - Wheezing [Recovering/Resolving]
  - Hypercapnia [Recovering/Resolving]
  - Blood lactic acid increased [Recovering/Resolving]
  - Dyspnoea [Recovering/Resolving]
  - PCO2 increased [Recovering/Resolving]
  - Status asthmaticus [Recovered/Resolved]
  - Respiratory acidosis [Recovering/Resolving]
  - Blood bicarbonate decreased [Recovering/Resolving]
  - Respiratory rate increased [Recovering/Resolving]
  - PO2 decreased [Recovering/Resolving]
  - Lung hyperinflation [Recovering/Resolving]
  - Drug ineffective [Unknown]
  - Bronchospasm [Recovering/Resolving]
  - Asthma [Recovered/Resolved]
  - Blood pH decreased [Recovering/Resolving]
  - Cyanosis [Recovering/Resolving]
  - Acute respiratory failure [Recovered/Resolved]
